FAERS Safety Report 7092229-1 (Version None)
Quarter: 2010Q4

REPORT INFORMATION
  Report Type: 
  Country: None (occurrence: None)
  Receive Date: 20101109
  Receipt Date: 20101103
  Transmission Date: 20110411
  Serious: Yes (Other)
  Sender: FDA-Public Use
  Company Number: US-PFIZER INC-2010127596

PATIENT
  Sex: Female

DRUGS (2)
  1. XALATAN [Suspect]
     Indication: NORMAL TENSION GLAUCOMA
     Dosage: ONE DROP IN BOTH EYES, 1X/DAY AT BEDTIME
     Route: 047
     Dates: start: 20081002, end: 20101001
  2. PRAVASTATIN [Concomitant]
     Dosage: UNK
     Dates: start: 20071101, end: 20100701

REACTIONS (6)
  - DEAFNESS [None]
  - DEAFNESS NEUROSENSORY [None]
  - MENIERE'S DISEASE [None]
  - THIRST [None]
  - TINNITUS [None]
  - VERTIGO [None]
